FAERS Safety Report 17591249 (Version 1)
Quarter: 2020Q1

REPORT INFORMATION
  Report Type: Spontaneous
  Country: US (occurrence: US)
  Receive Date: 20200327
  Receipt Date: 20200327
  Transmission Date: 20200409
  Serious: No
  Sender: FDA-Public Use
  Company Number: US-PFIZER INC-2020124193

PATIENT
  Age: 42 Year
  Sex: Female

DRUGS (1)
  1. XELJANZ XR [Suspect]
     Active Substance: TOFACITINIB CITRATE
     Dosage: 11 MG, UNK
     Dates: start: 20191201

REACTIONS (7)
  - Gait disturbance [Unknown]
  - Fibromyalgia [Unknown]
  - Pain [Unknown]
  - Product dose omission [Unknown]
  - Loss of personal independence in daily activities [Unknown]
  - Back disorder [Unknown]
  - Hypersensitivity [Unknown]
